FAERS Safety Report 11018902 (Version 2)
Quarter: 2015Q2

REPORT INFORMATION
  Report Type: Spontaneous
  Country: US (occurrence: US)
  Receive Date: 20150412
  Receipt Date: 20150525
  Transmission Date: 20150821
  Serious: Yes (Hospitalization, Other)
  Sender: FDA-Public Use
  Company Number: US-JNJFOC-20100805102

PATIENT
  Age: 60 Year
  Sex: Female

DRUGS (3)
  1. PREDNISONE. [Suspect]
     Active Substance: PREDNISONE
     Indication: ASTHMA
     Route: 065
  2. CIPROFLOXACIN. [Suspect]
     Active Substance: CIPROFLOXACIN
     Indication: DIARRHOEA
     Route: 065
  3. LEVAQUIN [Suspect]
     Active Substance: LEVOFLOXACIN
     Indication: IMPLANT SITE INFECTION
     Route: 048
     Dates: start: 20080307, end: 20080317

REACTIONS (3)
  - Tendon rupture [Unknown]
  - Tendon rupture [Unknown]
  - Tendon disorder [Unknown]

NARRATIVE: CASE EVENT DATE: 200803
